FAERS Safety Report 19879191 (Version 1)
Quarter: 2021Q3

REPORT INFORMATION
  Report Type: Spontaneous
  Country: US (occurrence: US)
  Receive Date: 20210924
  Receipt Date: 20210924
  Transmission Date: 20211014
  Serious: Yes (Death)
  Sender: FDA-Public Use
  Company Number: None

PATIENT
  Age: 57 Year
  Sex: Male
  Weight: 129 kg

DRUGS (1)
  1. BARICITINIB. [Suspect]
     Active Substance: BARICITINIB
     Indication: COVID-19 TREATMENT

REACTIONS (5)
  - Encephalopathy [None]
  - Cerebral infarction [None]
  - Cardiac arrest [None]
  - Death [None]
  - Cerebrovascular accident [None]
